FAERS Safety Report 8272182-5 (Version None)
Quarter: 2012Q2

REPORT INFORMATION
  Report Type: 
  Country: None (occurrence: None)
  Receive Date: 20120410
  Receipt Date: 20120403
  Transmission Date: 20120825
  Serious: Yes (Life-Threatening)
  Sender: FDA-Public Use
  Company Number: JP-ASTRAZENECA-2012SE22816

PATIENT
  Age: 80 Year
  Sex: Male

DRUGS (8)
  1. GRAMALIL [Suspect]
     Indication: DEMENTIA
     Route: 048
     Dates: start: 20120208, end: 20120325
  2. URIEF [Concomitant]
     Route: 048
     Dates: end: 20120325
  3. ALPRAZOLAM [Concomitant]
     Indication: DEMENTIA
     Route: 048
     Dates: start: 20120126, end: 20120325
  4. ARICEPT [Concomitant]
     Indication: DEMENTIA
     Route: 048
     Dates: start: 20120127, end: 20120325
  5. SEROQUEL [Suspect]
     Route: 048
     Dates: start: 20120322, end: 20120325
  6. ROHYPNOL [Concomitant]
     Indication: DEMENTIA
     Route: 048
     Dates: start: 20120208, end: 20120325
  7. HALCION [Concomitant]
     Route: 048
     Dates: start: 20120126, end: 20120207
  8. SEROQUEL [Suspect]
     Indication: DEMENTIA
     Route: 048
     Dates: start: 20120302, end: 20120321

REACTIONS (2)
  - NEUROLEPTIC MALIGNANT SYNDROME [None]
  - OFF LABEL USE [None]
